FAERS Safety Report 6067439-2 (Version None)
Quarter: 2009Q1

REPORT INFORMATION
  Report Type: 
  Country: None (occurrence: None)
  Receive Date: 20090205
  Receipt Date: 20090123
  Transmission Date: 20090719
  Serious: Yes (Hospitalization)
  Sender: FDA-Public Use
  Company Number: US-PFIZER INC-2009160948

PATIENT
  Sex: Female

DRUGS (9)
  1. BEXTRA [Suspect]
     Dosage: 20 MG, 1X/DAY
  2. PAXIL [Concomitant]
     Dosage: 20 MG, 1X/DAY
  3. LOTREL [Concomitant]
     Dosage: UNK
  4. LORTAB [Concomitant]
     Dosage: 7.5/500 P.R.N
  5. TOPROL-XL [Concomitant]
     Dosage: 1/2 Q.D.
  6. AMBIEN [Concomitant]
     Dosage: 5 MG, Q.H.S.
  7. NEXIUM [Concomitant]
     Dosage: 40 MG, UNK
  8. FOLIC ACID [Concomitant]
     Dosage: 1 MG, UNK
  9. ASPIRIN [Concomitant]
     Dosage: UNK

REACTIONS (3)
  - CEREBROVASCULAR ACCIDENT [None]
  - DEMENTIA ALZHEIMER'S TYPE [None]
  - DEPRESSION [None]
